FAERS Safety Report 5795698-X (Version None)
Quarter: 2008Q2

REPORT INFORMATION
  Report Type: 
  Country: None (occurrence: None)
  Receive Date: 20080630
  Receipt Date: 20080625
  Transmission Date: 20081010
  Serious: Yes (Other)
  Sender: FDA-Public Use
  Company Number: AU-BOEHRINGER INGELHEIM GMBH, GERMANY-2008-BP-09824AU

PATIENT
  Sex: Male

DRUGS (1)
  1. MOBIC [Suspect]
     Route: 048
     Dates: start: 20080516

REACTIONS (1)
  - CARDIAC FAILURE ACUTE [None]
